FAERS Safety Report 17124232 (Version 1)
Quarter: 2019Q4

REPORT INFORMATION
  Report Type: Spontaneous
  Country: SA (occurrence: SA)
  Receive Date: 20191206
  Receipt Date: 20191206
  Transmission Date: 20200122
  Serious: Yes (Other)
  Sender: FDA-Public Use
  Company Number: SA-SA-2019SA335738

PATIENT
  Age: 38 Year
  Sex: Female

DRUGS (2)
  1. CLEXANE [Suspect]
     Active Substance: ENOXAPARIN SODIUM
     Dosage: STRENGTH-40 MG
  2. CLEXANE [Suspect]
     Active Substance: ENOXAPARIN SODIUM
     Dosage: 20 MG

REACTIONS (3)
  - Renal impairment [Unknown]
  - Exposure during pregnancy [Unknown]
  - Anti factor X activity increased [Recovered/Resolved]

NARRATIVE: CASE EVENT DATE: 20191202
